FAERS Safety Report 9601103 (Version 2)
Quarter: 2013Q4

REPORT INFORMATION
  Report Type: Spontaneous
  Country: US (occurrence: US)
  Receive Date: 20131004
  Receipt Date: 20131004
  Transmission Date: 20140711
  Serious: No
  Sender: FDA-Public Use
  Company Number: US-AMGEN-USASP2013037490

PATIENT
  Age: 58 Year
  Sex: Male
  Weight: 85.71 kg

DRUGS (11)
  1. ENBREL [Suspect]
     Indication: RHEUMATOID ARTHRITIS
     Dosage: UNK
     Route: 065
  2. HUMIRA [Concomitant]
     Indication: RHEUMATOID ARTHRITIS
     Dosage: 40 MG, UNK
  3. FOLIC ACID [Concomitant]
     Dosage: UNK
  4. HUMALOG [Concomitant]
     Indication: DIABETES MELLITUS
     Dosage: UNK
  5. LEVEMIR [Concomitant]
     Indication: DIABETES MELLITUS
     Dosage: UNK
  6. LISINOPRIL [Concomitant]
     Dosage: UNK
  7. METHOTREXATE [Concomitant]
     Dosage: UNK
  8. OMEGA 3                            /01334101/ [Concomitant]
     Dosage: UNK
  9. OXYBUTYNIN [Concomitant]
     Dosage: UNK
  10. SIMPONI [Concomitant]
     Dosage: UNK
  11. REMICADE [Concomitant]
     Dosage: UNK

REACTIONS (3)
  - Injection site mass [Recovered/Resolved]
  - Injection site swelling [Unknown]
  - Injection site warmth [Recovered/Resolved]
